FAERS Safety Report 5951050-5 (Version None)
Quarter: 2008Q4

REPORT INFORMATION
  Report Type: 
  Country: None (occurrence: None)
  Receive Date: 20081110
  Receipt Date: 20081027
  Transmission Date: 20090506
  Serious: Yes (Death)
  Sender: FDA-Public Use
  Company Number: 20492

PATIENT
  Age: 71 Year
  Sex: Male

DRUGS (2)
  1. CYTARABINE [Suspect]
     Indication: CHEMOTHERAPY
     Dosage: 20- MG BID SC
     Route: 058
     Dates: start: 20080905, end: 20081004
  2. GEMTUZUMAB [Suspect]
     Indication: CHEMOTHERAPY
     Dosage: 5 MG IV
     Route: 042
     Dates: start: 20080925, end: 20081004

REACTIONS (1)
  - SUBDURAL HAEMORRHAGE [None]
